FAERS Safety Report 25058585 (Version 1)
Quarter: 2025Q1

REPORT INFORMATION
  Report Type: Spontaneous
  Country: US (occurrence: US)
  Receive Date: 20250310
  Receipt Date: 20250310
  Transmission Date: 20250409
  Serious: Yes (Death, Other)
  Sender: CHEPLAPHARM
  Company Number: US-CHEPLA-2025002935

PATIENT
  Age: 53 Year
  Sex: Male

DRUGS (8)
  1. VALGANCICLOVIR [Suspect]
     Active Substance: VALGANCICLOVIR
     Indication: Prophylaxis
  2. TACROLIMUS [Suspect]
     Active Substance: TACROLIMUS
     Indication: Prophylaxis
  3. MYCOPHENOLATE MOFETIL [Suspect]
     Active Substance: MYCOPHENOLATE MOFETIL
     Indication: Prophylaxis
  4. SULFAMETHOXAZOLE\TRIMETHOPRIM [Suspect]
     Active Substance: SULFAMETHOXAZOLE\TRIMETHOPRIM
     Indication: Prophylaxis
  5. THYMOCYTE IMMUNE GLOBULIN NOS [Concomitant]
     Active Substance: THYMOCYTE IMMUNE GLOBULIN NOS
     Dosage: DAILY DOSE: 2 MILLIGRAM/KG
  6. THYMOCYTE IMMUNE GLOBULIN NOS [Concomitant]
     Active Substance: THYMOCYTE IMMUNE GLOBULIN NOS
  7. METHYLPREDNISOLONE [Concomitant]
     Active Substance: METHYLPREDNISOLONE
     Route: 042
  8. METHYLPREDNISOLONE [Concomitant]
     Active Substance: METHYLPREDNISOLONE

REACTIONS (14)
  - Cardiac arrest [Fatal]
  - Bradycardia [Fatal]
  - Polyomavirus viraemia [Unknown]
  - Transplant rejection [Unknown]
  - Haematemesis [Unknown]
  - Monkeypox [Unknown]
  - Encephalopathy [Unknown]
  - Respiratory failure [Unknown]
  - Shock [Unknown]
  - Multiple organ dysfunction syndrome [Unknown]
  - Lactic acidosis [Unknown]
  - Enterobacter infection [Unknown]
  - Drug ineffective [Unknown]
  - Coagulopathy [Unknown]

NARRATIVE: CASE EVENT DATE: 20221012
